FAERS Safety Report 4367824-0 (Version None)
Quarter: 2004Q2

REPORT INFORMATION
  Report Type: 
  Country: None (occurrence: None)
  Receive Date: 20040527
  Receipt Date: 20030530
  Transmission Date: 20050107
  Serious: Yes (Other)
  Sender: FDA-Public Use
  Company Number: ZONI001121

PATIENT
  Age: 40 Year
  Sex: Female

DRUGS (1)
  1. ZONEGRAN [Suspect]
     Indication: NEUROPATHIC PAIN
     Dosage: 400 MG DAILY ORAL
     Route: 048
     Dates: end: 20030527

REACTIONS (1)
  - SYSTEMIC LUPUS ERYTHEMATOSUS [None]
